FAERS Safety Report 5698144-X (Version None)
Quarter: 2008Q2

REPORT INFORMATION
  Report Type: 
  Country: None (occurrence: None)
  Receive Date: 20080408
  Receipt Date: 20080331
  Transmission Date: 20081010
  Serious: Yes (Hospitalization, Disabling, Other)
  Sender: FDA-Public Use
  Company Number: US-ELI_LILLY_AND_COMPANY-US200803006817

PATIENT
  Sex: Male
  Weight: 126.98 kg

DRUGS (3)
  1. BYETTA [Suspect]
     Dosage: 10 UG, 2/D
     Route: 058
     Dates: start: 20050101
  2. PRANDIN [Concomitant]
     Indication: DIABETES MELLITUS
     Dosage: UNK, 3/D
     Route: 065
  3. ACTOS [Concomitant]
     Indication: DIABETES MELLITUS
     Dosage: UNK, UNKNOWN
     Route: 065

REACTIONS (11)
  - ABASIA [None]
  - BALANCE DISORDER [None]
  - BLOOD GLUCOSE INCREASED [None]
  - CAROTID ARTERY OCCLUSION [None]
  - CORONARY ARTERIAL STENT INSERTION [None]
  - DIARRHOEA [None]
  - DIZZINESS [None]
  - FALL [None]
  - INCONTINENCE [None]
  - LUNG DISORDER [None]
  - PARKINSON'S DISEASE [None]
